FAERS Safety Report 20536869 (Version 1)
Quarter: 2022Q1

REPORT INFORMATION
  Report Type: Spontaneous
  Country: DE (occurrence: DE)
  Receive Date: 20220302
  Receipt Date: 20220302
  Transmission Date: 20220423
  Serious: Yes (Hospitalization, Congenital Anomaly, Other)
  Sender: FDA-Public Use
  Company Number: DE-EMBRYOTOX-202004741

PATIENT
  Age: 1 Day
  Sex: Female
  Weight: 3.535 kg

DRUGS (4)
  1. PALIPERIDONE PALMITATE [Suspect]
     Active Substance: PALIPERIDONE PALMITATE
     Indication: Schizophrenia
     Dosage: 100 [MG/2WK ]/ DOSAGE INCREASED FROM 75MG TO 100MG EVERY SECOND WEEK
     Route: 064
     Dates: start: 20190819, end: 20200603
  2. PALIPERIDONE PALMITATE [Suspect]
     Active Substance: PALIPERIDONE PALMITATE
  3. PALIPERIDONE PALMITATE [Suspect]
     Active Substance: PALIPERIDONE PALMITATE
  4. CIPRALEX [Suspect]
     Active Substance: ESCITALOPRAM OXALATE
     Indication: Suicidal ideation
     Dosage: 15 [MG/D]
     Route: 064

REACTIONS (14)
  - Drug withdrawal syndrome neonatal [Recovered/Resolved]
  - Macrocephaly [Not Recovered/Not Resolved]
  - Foetal exposure during pregnancy [Recovered/Resolved]
  - Bradycardia neonatal [Recovered/Resolved]
  - Nystagmus [Unknown]
  - Selective eating disorder [Recovered/Resolved]
  - Cerebral atrophy [Not Recovered/Not Resolved]
  - Oxygen saturation decreased [Recovered/Resolved]
  - Myoclonus [Recovered/Resolved]
  - Coordination abnormal [Unknown]
  - Dysmorphism [Not Recovered/Not Resolved]
  - Hypotonia neonatal [Recovered/Resolved]
  - Congenital central nervous system anomaly [Not Recovered/Not Resolved]
  - Temperature regulation disorder [Recovered/Resolved]

NARRATIVE: CASE EVENT DATE: 20200603
